FAERS Safety Report 4400853-7 (Version None)
Quarter: 2004Q3

REPORT INFORMATION
  Report Type: 
  Country: None (occurrence: None)
  Receive Date: 20040907
  Receipt Date: 20030707
  Transmission Date: 20050211
  Serious: No
  Sender: FDA-Public Use
  Company Number: US-BRISTOL-MYERS SQUIBB COMPANY-12319000

PATIENT
  Age: 54 Year
  Sex: Female
  Weight: 59 kg

DRUGS (8)
  1. COUMADIN [Suspect]
     Indication: THROMBOSIS
     Dosage: CURRENT DOSAGE: 3/4 OF A 10MG TABLET DAILY FOR SIX DAYS AND 10MG DAILY FOR ONE DAY
     Route: 048
     Dates: start: 19810101
  2. COUMADIN [Suspect]
     Indication: CARDIAC DISORDER
     Dosage: CURRENT DOSAGE: 3/4 OF A 10MG TABLET DAILY FOR SIX DAYS AND 10MG DAILY FOR ONE DAY
     Route: 048
     Dates: start: 19810101
  3. COUMADIN [Suspect]
     Indication: PHLEBITIS
     Dosage: CURRENT DOSAGE: 3/4 OF A 10MG TABLET DAILY FOR SIX DAYS AND 10MG DAILY FOR ONE DAY
     Route: 048
     Dates: start: 19810101
  4. COUMADIN [Suspect]
     Indication: CARDIAC FAILURE
     Dosage: CURRENT DOSAGE: 3/4 OF A 10MG TABLET DAILY FOR SIX DAYS AND 10MG DAILY FOR ONE DAY
     Route: 048
     Dates: start: 19810101
  5. COUMADIN [Suspect]
     Indication: ANGIOPATHY
     Dosage: CURRENT DOSAGE: 3/4 OF A 10MG TABLET DAILY FOR SIX DAYS AND 10MG DAILY FOR ONE DAY
     Route: 048
     Dates: start: 19810101
  6. MULTIVITAMIN [Concomitant]
     Route: 048
  7. CALTRATE VITAMINE D3 [Concomitant]
  8. ELOCON [Concomitant]
     Route: 061

REACTIONS (6)
  - EPISTAXIS [None]
  - INTERNATIONAL NORMALISED RATIO INCREASED [None]
  - PRURITUS [None]
  - RASH [None]
  - SKIN ULCER [None]
  - URTICARIA [None]
